FAERS Safety Report 9172970 (Version 1)
Quarter: 2013Q1

REPORT INFORMATION
  Report Type: Spontaneous
  Country: DE (occurrence: DE)
  Receive Date: 20130320
  Receipt Date: 20130320
  Transmission Date: 20140127
  Serious: Yes (Hospitalization, Other)
  Sender: FDA-Public Use
  Company Number: DE-AMGEN-DEUSP2013019079

PATIENT
  Sex: Female

DRUGS (6)
  1. ENBREL [Suspect]
     Indication: RHEUMATOID ARTHRITIS
     Dosage: 50 MG, WEEKLY
     Dates: start: 20090201
  2. ENBREL [Suspect]
     Dosage: UNK
     Dates: start: 20130301
  3. ACTONEL [Concomitant]
     Dosage: UNK
  4. GEMCITABINE [Concomitant]
     Dosage: 15 MG, UNK
  5. VOLTAREN                           /00372301/ [Concomitant]
     Dosage: UNK
  6. OMEPRAZOL                          /00661201/ [Concomitant]
     Dosage: UNK

REACTIONS (2)
  - Fall [Unknown]
  - Lumbar vertebral fracture [Unknown]
